FAERS Safety Report 9306526 (Version 1)
Quarter: 2013Q1

REPORT INFORMATION
  Report Type: Spontaneous
  Country: US (occurrence: None)
  Receive Date: 20130329
  Receipt Date: 20130329
  Transmission Date: 20140127
  Serious: No
  Sender: FDA-Public Use
  Company Number: JPI-P-030520

PATIENT
  Age: 43 Year
  Sex: Male

DRUGS (1)
  1. XYREM [Suspect]
     Indication: CATAPLEXY
     Dosage: 4.5 MG (2.25 GM , 2 IN 1 D), ORAL
     Dates: start: 20061012

REACTIONS (3)
  - Sleep apnoea syndrome [None]
  - Restless legs syndrome [None]
  - Condition aggravated [None]
